FAERS Safety Report 12601592 (Version 2)
Quarter: 2016Q3

REPORT INFORMATION
  Report Type: Report from Study
  Country: BR (occurrence: BR)
  Receive Date: 20160728
  Receipt Date: 20160729
  Transmission Date: 20161109
  Serious: Yes (Hospitalization)
  Sender: FDA-Public Use
  Company Number: PHHY2016BR102761

PATIENT
  Age: 38 Year
  Sex: Female
  Weight: 48 kg

DRUGS (1)
  1. GILENYA [Suspect]
     Active Substance: FINGOLIMOD HYDROCHLORIDE
     Indication: MULTIPLE SCLEROSIS
     Dosage: 2 DF, QD (STARTED 2 YEARS AGO)
     Route: 048
     Dates: end: 201511

REACTIONS (6)
  - Abasia [Recovering/Resolving]
  - Coma [Recovering/Resolving]
  - Hemiplegia [Recovering/Resolving]
  - Multiple sclerosis relapse [Recovering/Resolving]
  - Aphonia [Recovering/Resolving]
  - Overdose [Unknown]

NARRATIVE: CASE EVENT DATE: 20160305
